FAERS Safety Report 15501445 (Version 1)
Quarter: 2018Q4

REPORT INFORMATION
  Report Type: Report from Study
  Country: US (occurrence: US)
  Receive Date: 20181015
  Receipt Date: 20181015
  Transmission Date: 20190205
  Serious: No
  Sender: FDA-Public Use
  Company Number: US-AMGEN-USASL2018081333

PATIENT
  Age: 66 Year
  Sex: Female

DRUGS (1)
  1. BLINCYTO [Suspect]
     Active Substance: BLINATUMOMAB
     Indication: ACUTE LYMPHOCYTIC LEUKAEMIA
     Dosage: UNK, QD FOR 28 DAYS THEN TWO WEEK OFF
     Route: 065

REACTIONS (3)
  - Lip blister [Recovering/Resolving]
  - Pyrexia [Unknown]
  - Tongue blistering [Recovering/Resolving]
